FAERS Safety Report 9370767 (Version 3)
Quarter: 2022Q1

REPORT INFORMATION
  Report Type: Spontaneous
  Country: US (occurrence: US)
  Receive Date: 20130626
  Receipt Date: 20220124
  Transmission Date: 20220423
  Serious: Yes (Other)
  Sender: FDA-Public Use
  Company Number: US-PFIZER INC-2013187499

PATIENT
  Age: 49 Year
  Sex: Male

DRUGS (2)
  1. ZOLOFT [Suspect]
     Active Substance: SERTRALINE HYDROCHLORIDE
     Indication: Depression
     Dosage: UNK
     Dates: start: 20100102
  2. XANAX [Suspect]
     Active Substance: ALPRAZOLAM
     Dosage: UNK
     Dates: start: 20100104

REACTIONS (13)
  - Major depression [Unknown]
  - Anxiety disorder [Unknown]
  - Mania [Unknown]
  - Psychotic disorder [Unknown]
  - Homicide [Unknown]
  - Cognitive disorder [Unknown]
  - Hypothyroidism [Unknown]
  - Hallucination, auditory [Unknown]
  - Mental disorder [Unknown]
  - Affective disorder [Unknown]
  - Emotional disorder [Unknown]
  - Paranoia [Unknown]
  - Delusion [Unknown]

NARRATIVE: CASE EVENT DATE: 20100106
